FAERS Safety Report 8124345-7 (Version None)
Quarter: 2012Q1

REPORT INFORMATION
  Report Type: 
  Country: None (occurrence: None)
  Receive Date: 20120209
  Receipt Date: 20120131
  Transmission Date: 20120608
  Serious: Yes (Hospitalization)
  Sender: FDA-Public Use
  Company Number: IT-ELI_LILLY_AND_COMPANY-IT201201005206

PATIENT
  Sex: Female

DRUGS (4)
  1. ZYPREXA [Suspect]
     Indication: AFFECTIVE DISORDER
     Dosage: 10 MG, QD
     Route: 048
     Dates: start: 20111221
  2. PROMAZINE HYDROCHLORIDE [Concomitant]
     Dosage: UNK
     Dates: start: 20111228
  3. ZYPREXA [Suspect]
     Dosage: 15 MG, QD
     Route: 048
     Dates: start: 20111222, end: 20111223
  4. VALIUM [Concomitant]
     Dosage: UNK
     Route: 030
     Dates: start: 20111228

REACTIONS (3)
  - ACUTE PSYCHOSIS [None]
  - LIVER INJURY [None]
  - RHABDOMYOLYSIS [None]
